FAERS Safety Report 9980122 (Version 2)
Quarter: 2014Q1

REPORT INFORMATION
  Report Type: Spontaneous
  Country: DE (occurrence: None)
  Receive Date: 20140305
  Receipt Date: 20140313
  Transmission Date: 20141002
  Serious: Yes (Death)
  Sender: FDA-Public Use
  Company Number: 2014SA026555

PATIENT
  Age: 51 Year
  Sex: Male
  Weight: 68 kg

DRUGS (3)
  1. DIPHENHYDRAMINE (DIPHENHYDRAMINE) [Suspect]
     Indication: SUICIDE ATTEMPT
     Route: 048
  2. NICOTINE [Suspect]
     Indication: SUICIDE ATTEMPT
  3. TETRAZEPAM [Suspect]
     Indication: SUICIDE ATTEMPT

REACTIONS (4)
  - Completed suicide [None]
  - Toxicity to various agents [None]
  - Arteriosclerosis [None]
  - Pulmonary congestion [None]
